FAERS Safety Report 25829152 (Version 4)
Quarter: 2025Q4

REPORT INFORMATION
  Report Type: Report from Study
  Country: JP (occurrence: JP)
  Receive Date: 20250922
  Receipt Date: 20251104
  Transmission Date: 20260117
  Serious: Yes (Hospitalization, Other)
  Sender: ASTELLAS
  Company Number: JP-ASTELLAS-2025-AER-051179

PATIENT
  Age: 38 Year
  Sex: Female
  Weight: 38 kg

DRUGS (51)
  1. VYLOY [Suspect]
     Active Substance: ZOLBETUXIMAB-CLZB
     Indication: Gastric cancer recurrent
     Route: 065
     Dates: start: 20241225, end: 20241225
  2. VYLOY [Suspect]
     Active Substance: ZOLBETUXIMAB-CLZB
     Indication: Oesophageal cancer metastatic
     Route: 065
     Dates: start: 20250115, end: 20250115
  3. VYLOY [Suspect]
     Active Substance: ZOLBETUXIMAB-CLZB
     Route: 065
     Dates: start: 20250217, end: 20250217
  4. VYLOY [Suspect]
     Active Substance: ZOLBETUXIMAB-CLZB
     Route: 065
     Dates: start: 20250305, end: 20250305
  5. VYLOY [Suspect]
     Active Substance: ZOLBETUXIMAB-CLZB
     Route: 065
     Dates: start: 20250326, end: 20250326
  6. VYLOY [Suspect]
     Active Substance: ZOLBETUXIMAB-CLZB
     Route: 065
     Dates: start: 20250409, end: 20250430
  7. CAPECITABINE [Suspect]
     Active Substance: CAPECITABINE
     Indication: Product used for unknown indication
     Route: 065
     Dates: start: 20241225, end: 20250108
  8. OXALIPLATIN [Suspect]
     Active Substance: OXALIPLATIN
     Indication: Product used for unknown indication
     Route: 065
     Dates: start: 20241225, end: 20250108
  9. OXALIPLATIN [Suspect]
     Active Substance: OXALIPLATIN
     Route: 065
     Dates: start: 20250115, end: 20250411
  10. FLUOROURACIL [Suspect]
     Active Substance: FLUOROURACIL
     Indication: Product used for unknown indication
     Route: 065
     Dates: start: 20250115, end: 20250411
  11. PACLITAXEL [Concomitant]
     Active Substance: PACLITAXEL
     Indication: Gastric cancer
     Route: 065
  12. RAMUCIRUMAB [Concomitant]
     Active Substance: RAMUCIRUMAB
     Indication: Gastric cancer
     Route: 065
  13. PALONOSETRON [Concomitant]
     Active Substance: PALONOSETRON
     Indication: Prophylaxis of nausea and vomiting
     Route: 065
     Dates: start: 20241225, end: 20241225
  14. PALONOSETRON [Concomitant]
     Active Substance: PALONOSETRON
     Route: 065
     Dates: start: 20250115, end: 20250115
  15. PALONOSETRON [Concomitant]
     Active Substance: PALONOSETRON
     Route: 065
     Dates: start: 20250217, end: 20250217
  16. PALONOSETRON [Concomitant]
     Active Substance: PALONOSETRON
     Route: 065
     Dates: start: 20250305, end: 20250305
  17. PALONOSETRON [Concomitant]
     Active Substance: PALONOSETRON
     Route: 065
     Dates: start: 20250326, end: 20250326
  18. PALONOSETRON [Concomitant]
     Active Substance: PALONOSETRON
     Route: 065
     Dates: start: 20250409, end: 20250409
  19. FOSNETUPITANT [Concomitant]
     Active Substance: FOSNETUPITANT
     Indication: Prophylaxis of nausea and vomiting
     Route: 065
     Dates: start: 20241225, end: 20241225
  20. FOSNETUPITANT [Concomitant]
     Active Substance: FOSNETUPITANT
     Route: 065
     Dates: start: 20250115, end: 20250115
  21. FOSNETUPITANT [Concomitant]
     Active Substance: FOSNETUPITANT
     Route: 065
     Dates: start: 20250217, end: 20250217
  22. FOSNETUPITANT [Concomitant]
     Active Substance: FOSNETUPITANT
     Route: 065
     Dates: start: 20250305, end: 20250305
  23. FOSNETUPITANT [Concomitant]
     Active Substance: FOSNETUPITANT
     Route: 065
     Dates: start: 20250326, end: 20250326
  24. FOSNETUPITANT [Concomitant]
     Active Substance: FOSNETUPITANT
     Route: 065
     Dates: start: 20250409, end: 20250409
  25. DEXAMETHASONE [Concomitant]
     Active Substance: DEXAMETHASONE
     Indication: Prophylaxis of nausea and vomiting
     Route: 065
     Dates: start: 20241225, end: 20241225
  26. DEXAMETHASONE [Concomitant]
     Active Substance: DEXAMETHASONE
     Route: 065
     Dates: start: 20250115, end: 20250115
  27. DEXAMETHASONE [Concomitant]
     Active Substance: DEXAMETHASONE
     Route: 065
     Dates: start: 20250217, end: 20250217
  28. DEXAMETHASONE [Concomitant]
     Active Substance: DEXAMETHASONE
     Route: 065
     Dates: start: 20250305, end: 20250305
  29. DEXAMETHASONE [Concomitant]
     Active Substance: DEXAMETHASONE
     Route: 065
     Dates: start: 20250326, end: 20250326
  30. DEXAMETHASONE [Concomitant]
     Active Substance: DEXAMETHASONE
     Route: 065
     Dates: start: 20250409, end: 20250409
  31. OLANZAPINE [Concomitant]
     Active Substance: OLANZAPINE
     Indication: Prophylaxis of nausea and vomiting
     Route: 065
     Dates: start: 20241225, end: 20241225
  32. OLANZAPINE [Concomitant]
     Active Substance: OLANZAPINE
     Dosage: DOSE INCREASED
     Route: 065
     Dates: start: 20250217, end: 20250217
  33. LORAZEPAM [Concomitant]
     Active Substance: LORAZEPAM
     Indication: Prophylaxis of nausea and vomiting
     Route: 065
     Dates: start: 20241225, end: 20241225
  34. LORAZEPAM [Concomitant]
     Active Substance: LORAZEPAM
     Dosage: DOSE INCREASED
     Route: 065
     Dates: start: 20250326, end: 20250326
  35. CHLORPHENIRAMINE [Concomitant]
     Active Substance: CHLORPHENIRAMINE
     Indication: Prophylaxis of nausea and vomiting
     Route: 065
     Dates: start: 20241225, end: 20241225
  36. CHLORPHENIRAMINE [Concomitant]
     Active Substance: CHLORPHENIRAMINE
     Route: 065
     Dates: start: 20250115, end: 20250115
  37. CHLORPHENIRAMINE [Concomitant]
     Active Substance: CHLORPHENIRAMINE
     Route: 065
     Dates: start: 20250217, end: 20250217
  38. CHLORPHENIRAMINE [Concomitant]
     Active Substance: CHLORPHENIRAMINE
     Route: 065
     Dates: start: 20250305, end: 20250305
  39. CHLORPHENIRAMINE [Concomitant]
     Active Substance: CHLORPHENIRAMINE
     Route: 065
     Dates: start: 20250326, end: 20250326
  40. CHLORPHENIRAMINE [Concomitant]
     Active Substance: CHLORPHENIRAMINE
     Route: 065
     Dates: start: 20250409, end: 20250409
  41. LEVOLEUCOVORIN CALCIUM [Concomitant]
     Active Substance: LEVOLEUCOVORIN CALCIUM
     Indication: Product used for unknown indication
     Route: 065
     Dates: start: 20250115, end: 20250411
  42. LOKELMA [Concomitant]
     Active Substance: SODIUM ZIRCONIUM CYCLOSILICATE
     Indication: Hyperkalaemia
     Route: 048
     Dates: start: 20241227, end: 20241228
  43. AMINO ACIDS\DEXTROSE\ELECTROLYTES NOS\MINERALS\VITAMINS [Concomitant]
     Active Substance: AMINO ACIDS\DEXTROSE\ELECTROLYTES NOS\MINERALS\VITAMINS
     Indication: Weight decreased
     Route: 065
     Dates: start: 20250110, end: 20250114
  44. AMINO ACIDS\DEXTROSE\ELECTROLYTES NOS\MINERALS\VITAMINS [Concomitant]
     Active Substance: AMINO ACIDS\DEXTROSE\ELECTROLYTES NOS\MINERALS\VITAMINS
     Indication: Weight decreased
     Route: 065
     Dates: start: 20250115, end: 20250514
  45. TAZOPIPE COMBINATION FOR I.V. DRIP INFUSION [Concomitant]
     Indication: Pyrexia
     Route: 065
     Dates: start: 20250128, end: 20250203
  46. TAZOPIPE COMBINATION FOR I.V. DRIP INFUSION [Concomitant]
     Indication: Catheter site cellulitis
     Route: 065
     Dates: start: 20250305, end: 20250307
  47. METOCLOPRAMIDE [Concomitant]
     Active Substance: METOCLOPRAMIDE
     Indication: Vomiting
     Route: 065
     Dates: start: 20250214, end: 20250214
  48. METOCLOPRAMIDE [Concomitant]
     Active Substance: METOCLOPRAMIDE
     Indication: Vomiting
     Route: 048
     Dates: start: 20250219, end: 20250514
  49. METOCLOPRAMIDE [Concomitant]
     Active Substance: METOCLOPRAMIDE
     Indication: Nausea
  50. FILGRASTIM BS INJECTION 75 UG [Concomitant]
     Indication: Neutrophil count decreased
     Route: 065
     Dates: start: 20250319, end: 20250319
  51. LEVOFLOXACIN [Concomitant]
     Active Substance: LEVOFLOXACIN
     Indication: Neutrophil count decreased
     Route: 048
     Dates: start: 20250319, end: 20250325

REACTIONS (13)
  - Hyperkalaemia [Recovered/Resolved]
  - Neutrophil count decreased [Recovered/Resolved]
  - Neutrophil count decreased [Recovered/Resolved]
  - Febrile neutropenia [Recovered/Resolved]
  - Hepatic function abnormal [Recovered/Resolved]
  - Hypoaesthesia [Recovered/Resolved]
  - Weight decreased [Not Recovered/Not Resolved]
  - Malaise [Not Recovered/Not Resolved]
  - Hypoalbuminaemia [Not Recovered/Not Resolved]
  - Vomiting [Not Recovered/Not Resolved]
  - Platelet count decreased [Recovered/Resolved]
  - Nausea [Not Recovered/Not Resolved]
  - Catheter site cellulitis [Recovering/Resolving]

NARRATIVE: CASE EVENT DATE: 20241226
